FAERS Safety Report 6738985-0 (Version None)
Quarter: 2010Q2

REPORT INFORMATION
  Report Type: 
  Country: None (occurrence: None)
  Receive Date: 20100524
  Receipt Date: 20100524
  Transmission Date: 20101027
  Serious: No
  Sender: FDA-Public Use
  Company Number: None

PATIENT
  Sex: Female
  Weight: 53.6 kg

DRUGS (4)
  1. MERCAPTOPURINE [Suspect]
     Dosage: 25 MG
     Dates: end: 20100520
  2. METHOTREXATE [Suspect]
     Dosage: 15 MG
     Dates: end: 20100415
  3. PREDNISONE [Suspect]
     Dosage: 300 MG
     Dates: end: 20100419
  4. VINCRISTINE [Suspect]
     Dosage: 4 MG
     Dates: end: 20100513

REACTIONS (3)
  - BONE MARROW FAILURE [None]
  - CRYPTOSPORIDIOSIS INFECTION [None]
  - IRON OVERLOAD [None]
